FAERS Safety Report 9240955 (Version 1)
Quarter: 2013Q2

REPORT INFORMATION
  Report Type: Spontaneous
  Country: US (occurrence: None)
  Receive Date: 20130418
  Receipt Date: 20130418
  Transmission Date: 20140414
  Serious: Yes (Other)
  Sender: FDA-Public Use
  Company Number: None

PATIENT
  Age: 2 Year
  Sex: Female
  Weight: 15.42 kg

DRUGS (1)
  1. MONTELUKAST [Suspect]
     Dosage: 1 00
     Dates: start: 201302

REACTIONS (3)
  - Abdominal discomfort [None]
  - Drug ineffective [None]
  - Product substitution issue [None]
